APPROVED DRUG PRODUCT: METFORMIN HYDROCHLORIDE
Active Ingredient: METFORMIN HYDROCHLORIDE
Strength: 500MG
Dosage Form/Route: TABLET, EXTENDED RELEASE;ORAL
Application: A202306 | Product #001 | TE Code: AB1
Applicant: MEDICAP LABORATORIES
Approved: Feb 23, 2017 | RLD: No | RS: No | Type: RX